FAERS Safety Report 4269807-8 (Version None)
Quarter: 2004Q1

REPORT INFORMATION
  Report Type: 
  Country: None (occurrence: None)
  Receive Date: 20040112
  Receipt Date: 20040107
  Transmission Date: 20041129
  Serious: Yes (Hospitalization, Other)
  Sender: FDA-Public Use
  Company Number: 200314252BCC

PATIENT
  Age: 77 Year
  Sex: Female
  Weight: 90.7194 kg

DRUGS (12)
  1. ASPIRIN [Suspect]
     Dosage: 325 MG, QD, ORAL
     Route: 048
     Dates: start: 20030701
  2. ALTACE [Concomitant]
  3. RANITIDINE [Concomitant]
  4. LANOXIN [Concomitant]
  5. ADVAIR DISKUS 250/50 [Concomitant]
  6. GLYBURIDE [Concomitant]
  7. LANTUS [Concomitant]
  8. LESCOL [Concomitant]
  9. ALLEGRA [Concomitant]
  10. DILTIAZEM [Concomitant]
  11. TRAVATAN [Concomitant]
  12. DIAMOX [Concomitant]

REACTIONS (2)
  - BLOOD GLUCOSE INCREASED [None]
  - CELLULITIS [None]
